FAERS Safety Report 8152338-2 (Version None)
Quarter: 2012Q1

REPORT INFORMATION
  Report Type: 
  Country: None (occurrence: None)
  Receive Date: 20120221
  Receipt Date: 20120207
  Transmission Date: 20120608
  Serious: Yes (Hospitalization)
  Sender: FDA-Public Use
  Company Number: US-CELGENEUS-163-21880-12020806

PATIENT
  Sex: Female
  Weight: 46.3 kg

DRUGS (12)
  1. REVLIMID [Suspect]
     Dosage: 10 MILLIGRAM
     Route: 048
     Dates: start: 20081204, end: 20091118
  2. ESCITALOPRAM [Concomitant]
     Dosage: 10 MILLIGRAM
     Route: 065
  3. REVLIMID [Suspect]
     Indication: NON-HODGKIN'S LYMPHOMA
     Dosage: 10 MILLIGRAM
     Route: 048
     Dates: start: 20091210, end: 20111025
  4. RITUXIMAB [Concomitant]
     Indication: NON-HODGKIN'S LYMPHOMA
     Dosage: 375 MILLIGRAM/SQ. METER
     Route: 065
     Dates: start: 20090206, end: 20090227
  5. GABAPENTIN [Concomitant]
     Dosage: 300 MILLIGRAM
     Route: 065
  6. ASPIRIN [Concomitant]
     Dosage: 81 MILLIGRAM
     Route: 065
  7. PRAVACHOL [Concomitant]
     Dosage: 10 MILLIGRAM
     Route: 065
  8. VALACYCLOVIR [Concomitant]
     Dosage: 500 MILLIGRAM
     Route: 065
  9. DEXAMETHASONE [Suspect]
     Indication: NON-HODGKIN'S LYMPHOMA
     Dosage: 8 MILLIGRAM
     Route: 048
     Dates: start: 20091210, end: 20111025
  10. MULTI-VITAMINS [Concomitant]
     Dosage: 1
     Route: 048
  11. DEXAMETHASONE [Suspect]
     Dosage: 8 MILLIGRAM
     Route: 048
     Dates: start: 20081201
  12. OXYCODONE HCL [Concomitant]
     Dosage: 5 MILLIGRAM
     Route: 065

REACTIONS (2)
  - ACUTE LYMPHOCYTIC LEUKAEMIA [None]
  - DISEASE PROGRESSION [None]
